FAERS Safety Report 15857632 (Version 3)
Quarter: 2019Q2

REPORT INFORMATION
  Report Type: Spontaneous
  Country: IT (occurrence: IT)
  Receive Date: 20190123
  Receipt Date: 20190416
  Transmission Date: 20190711
  Serious: Yes (Hospitalization)
  Sender: FDA-Public Use
  Company Number: IT-BAYER-2019-015935

PATIENT
  Age: 84 Year
  Sex: Male

DRUGS (5)
  1. CARDIOASPIRIN 100 MG [Suspect]
     Active Substance: ASPIRIN
     Indication: MYOCARDIAL ISCHAEMIA
     Dosage: 100 MG, QD
     Route: 048
     Dates: start: 20091201, end: 20181227
  2. DILATREND [Concomitant]
     Active Substance: CARVEDILOL
  3. RANITIDINE. [Concomitant]
     Active Substance: RANITIDINE
  4. ALMARYTM [Concomitant]
     Active Substance: FLECAINIDE ACETATE
  5. LASIX [Concomitant]
     Active Substance: FUROSEMIDE

REACTIONS (2)
  - Colitis ulcerative [Unknown]
  - Rectal haemorrhage [Recovering/Resolving]

NARRATIVE: CASE EVENT DATE: 20181227
